FAERS Safety Report 15134289 (Version 1)
Quarter: 2018Q3

REPORT INFORMATION
  Report Type: Spontaneous
  Country: PT (occurrence: PT)
  Receive Date: 20180712
  Receipt Date: 20180712
  Transmission Date: 20181010
  Serious: Yes (Other)
  Sender: FDA-Public Use
  Company Number: PT-WEST-WARD PHARMACEUTICALS CORP.-PT-H14001-18-05632

PATIENT
  Age: 77 Year
  Sex: Female

DRUGS (3)
  1. RIFAMYCIN [Concomitant]
     Active Substance: RIFAMYCIN
     Indication: LUNG INFECTION
     Route: 065
  2. CIPROFLOXACIN. [Suspect]
     Active Substance: CIPROFLOXACIN
     Indication: LUNG INFECTION
     Route: 065
  3. ETHAMBUTOL [Concomitant]
     Active Substance: ETHAMBUTOL HYDROCHLORIDE
     Indication: LUNG INFECTION
     Dosage: 1200 MG (18 MG/KG/DAY), QD
     Route: 065

REACTIONS (1)
  - Gastrointestinal toxicity [Unknown]
